FAERS Safety Report 23668886 (Version 1)
Quarter: 2024Q1

REPORT INFORMATION
  Report Type: Spontaneous
  Country: IT (occurrence: IT)
  Receive Date: 20240325
  Receipt Date: 20240325
  Transmission Date: 20240410
  Serious: Yes (Death, Hospitalization, Other)
  Sender: FDA-Public Use
  Company Number: IT-IPSEN Group, Research and Development-2024-03993

PATIENT
  Age: 92 Year
  Sex: Male

DRUGS (7)
  1. PREDNISONE [Suspect]
     Active Substance: PREDNISONE
     Indication: Blood gonadotrophin releasing hormone
     Dosage: 10 MILLIGRAM, QD
     Route: 065
  2. ABIRATERONE [Suspect]
     Active Substance: ABIRATERONE
     Indication: Blood gonadotrophin releasing hormone
     Dosage: 1000 MG, DAILY
     Route: 065
  3. BICALUTAMIDE [Suspect]
     Active Substance: BICALUTAMIDE
     Indication: Blood gonadotrophin releasing hormone
     Dosage: 50 MILLIGRAM, QD
     Route: 065
  4. ENZALUTAMIDE [Suspect]
     Active Substance: ENZALUTAMIDE
     Indication: Blood gonadotrophin releasing hormone
     Dosage: 160 MG, DAILY
     Route: 065
     Dates: start: 202009
  5. TRIPTORELIN [Suspect]
     Active Substance: TRIPTORELIN
     Indication: Blood gonadotrophin releasing hormone
     Dosage: 3.75 MG, EVERY MONTH
     Route: 065
  6. TRIPTORELIN [Suspect]
     Active Substance: TRIPTORELIN
     Indication: Prostate cancer
     Dosage: 11.25 MG, EVERY 3 MONTHS
     Route: 065
  7. MEGESTROL [Suspect]
     Active Substance: MEGESTROL
     Indication: Blood gonadotrophin releasing hormone
     Dosage: 160 MG, DAILY
     Route: 065

REACTIONS (4)
  - Pulmonary fibrosis [Fatal]
  - Urinary retention [Unknown]
  - Prostatic specific antigen increased [Unknown]
  - Haematuria [Recovered/Resolved]
